FAERS Safety Report 8828271 (Version 1)
Quarter: 2012Q4

REPORT INFORMATION
  Report Type: 
  Country: US (occurrence: US)
  Receive Date: 20121008
  Receipt Date: 20121008
  Transmission Date: 20130627
  Serious: Yes (Hospitalization, Other)
  Sender: FDA-Public Use
  Company Number: PHEH2012US019479

PATIENT
  Age: 64 Year
  Sex: Female

DRUGS (2)
  1. DIOVAN HCT [Suspect]
     Indication: HYPERTENSION
     Dosage: 1 DF (80/12.5 mg), UNK
     Route: 048
  2. COUMADIN ^BOOTS^ [Concomitant]

REACTIONS (2)
  - Thrombosis [Unknown]
  - Femur fracture [Unknown]
